FAERS Safety Report 5901679-5 (Version None)
Quarter: 2008Q3

REPORT INFORMATION
  Report Type: 
  Country: None (occurrence: None)
  Receive Date: 20080929
  Receipt Date: 20080922
  Transmission Date: 20090109
  Serious: Yes (Disabling, Other)
  Sender: FDA-Public Use
  Company Number: A0745700A

PATIENT
  Age: 37 Year
  Sex: Female
  Weight: 55.9 kg

DRUGS (5)
  1. FLONASE [Suspect]
     Dosage: 4SPR PER DAY
     Route: 045
     Dates: start: 20021201, end: 20080301
  2. CLARITIN [Concomitant]
     Dosage: 10MG PER DAY
     Route: 048
  3. SINGULAIR [Concomitant]
     Dosage: 10MG PER DAY
     Route: 048
  4. OPTIVAR [Concomitant]
  5. ASTELIN [Concomitant]
     Dosage: 2SPR TWICE PER DAY
     Route: 045

REACTIONS (3)
  - CORNEAL DEGENERATION [None]
  - GLAUCOMA [None]
  - VISUAL ACUITY REDUCED [None]
